FAERS Safety Report 9002700 (Version 1)
Quarter: 2013Q1

REPORT INFORMATION
  Report Type: Spontaneous
  Country: US (occurrence: US)
  Receive Date: 20130107
  Receipt Date: 20130107
  Transmission Date: 20140127
  Serious: No
  Sender: FDA-Public Use
  Company Number: US-GLAXOSMITHKLINE-A0976665A

PATIENT
  Age: 30 Year
  Sex: Female
  Weight: 95.34 kg

DRUGS (13)
  1. BENLYSTA [Suspect]
     Indication: SYSTEMIC LUPUS ERYTHEMATOSUS
     Dosage: 10MGK CYCLIC
     Route: 042
     Dates: start: 20120224
  2. LIALDA [Concomitant]
  3. PREDNISONE [Concomitant]
  4. PAROXETINE [Concomitant]
  5. LANSOPRAZOLE [Concomitant]
  6. METFORMIN [Concomitant]
  7. PROGESTERONE [Concomitant]
  8. LISINOPRIL [Concomitant]
  9. FORTEO [Concomitant]
  10. VITAMIN D [Concomitant]
  11. IRON [Concomitant]
  12. BENADRYL [Concomitant]
     Indication: PREMEDICATION
  13. TYLENOL [Concomitant]
     Indication: PREMEDICATION

REACTIONS (3)
  - Fatigue [Recovered/Resolved]
  - Nail infection [Recovered/Resolved]
  - Condition aggravated [Recovered/Resolved]
